FAERS Safety Report 17903094 (Version 3)
Quarter: 2022Q3

REPORT INFORMATION
  Report Type: Report from Study
  Country: CA (occurrence: CA)
  Receive Date: 20200616
  Receipt Date: 20220711
  Transmission Date: 20221027
  Serious: Yes (Other)
  Sender: FDA-Public Use
  Company Number: CA-GLAXOSMITHKLINE-CA2020AMR097349

PATIENT

DRUGS (5)
  1. ALBUTEROL SULFATE [Suspect]
     Active Substance: ALBUTEROL SULFATE
     Indication: Asthma
     Dosage: 100 UG, PRN
  2. SINGULAIR [Suspect]
     Active Substance: MONTELUKAST SODIUM
     Indication: Product used for unknown indication
     Dosage: 10 MG, QD
  3. SYMBICORT [Suspect]
     Active Substance: BUDESONIDE\FORMOTEROL FUMARATE DIHYDRATE
     Indication: Product used for unknown indication
     Dosage: 2 PUFF(S), BID
     Route: 055
  4. SPIRIVA RESPIMAT [Suspect]
     Active Substance: TIOTROPIUM BROMIDE
     Indication: Product used for unknown indication
     Dosage: 1 PUFF(S), QD, 2.5 UG
     Route: 055
  5. NUCALA [Concomitant]
     Active Substance: MEPOLIZUMAB
     Indication: Asthma
     Dosage: 100 MG, Z MONTHLY
     Dates: start: 20200622

REACTIONS (14)
  - Asthma [Unknown]
  - Eosinophil count increased [Unknown]
  - Neutrophil count increased [Unknown]
  - Monocyte count increased [Unknown]
  - White blood cell count increased [Unknown]
  - Haematocrit increased [Unknown]
  - Mean cell haemoglobin decreased [Unknown]
  - Mean cell haemoglobin concentration decreased [Unknown]
  - Platelet count increased [Unknown]
  - Loss of personal independence in daily activities [Unknown]
  - Sleep disorder due to a general medical condition [Unknown]
  - Dyspnoea [Unknown]
  - Wheezing [Unknown]
  - Therapeutic product effect incomplete [Unknown]
